FAERS Safety Report 15066385 (Version 1)
Quarter: 2018Q2

REPORT INFORMATION
  Report Type: Spontaneous
  Country: IT (occurrence: IT)
  Receive Date: 20180626
  Receipt Date: 20180626
  Transmission Date: 20180711
  Serious: Yes (Other)
  Sender: FDA-Public Use
  Company Number: IT-MYLANLABS-2018M1043507

PATIENT
  Age: 18 Year
  Sex: Female

DRUGS (2)
  1. TOPIRAMATE. [Suspect]
     Active Substance: TOPIRAMATE
     Indication: MIGRAINE
     Dosage: 2 DF, QD  (PER DAY)
     Route: 048
     Dates: start: 20171005, end: 20180105
  2. TACHIFENE [Concomitant]
     Indication: PRODUCT USED FOR UNKNOWN INDICATION
     Dosage: UNK
     Route: 065

REACTIONS (6)
  - Vertigo [Unknown]
  - Dyspepsia [Unknown]
  - Hallucination [Unknown]
  - Vomiting [Unknown]
  - Tremor [Unknown]
  - Photophobia [Unknown]

NARRATIVE: CASE EVENT DATE: 20180105
